FAERS Safety Report 6719578-8 (Version None)
Quarter: 2010Q2

REPORT INFORMATION
  Report Type: 
  Country: None (occurrence: None)
  Receive Date: 20100511
  Receipt Date: 20100427
  Transmission Date: 20101027
  Serious: Yes (Other)
  Sender: FDA-Public Use
  Company Number: US-ELI_LILLY_AND_COMPANY-US201002006319

PATIENT
  Sex: Female

DRUGS (20)
  1. FORTEO [Suspect]
     Indication: OSTEOPOROSIS
     Dosage: 20 UG, DAILY (1/D)
     Route: 065
     Dates: start: 20091001
  2. CYMBALTA [Concomitant]
     Indication: ARTHRITIS
     Dosage: 60 MG, DAILY (1/D)
     Route: 065
  3. SYNTHROID [Concomitant]
     Dosage: 75 UG, DAILY (1/D)
     Route: 065
  4. NEXIUM [Concomitant]
     Dosage: 40 MG, DAILY (1/D)
     Route: 065
  5. ATENOLOL [Concomitant]
     Dosage: 25 MG, 2/D
     Route: 065
  6. VITAMINS [Concomitant]
     Dosage: UNK, DAILY (1/D)
     Route: 065
  7. TIMOLOL MALEATE [Concomitant]
     Indication: GLAUCOMA
     Dosage: UNK, DAILY (1/D)
     Route: 047
  8. PREDNISONE TAB [Concomitant]
     Dosage: 5 MG, OTHER
     Route: 065
  9. LIDOCAINE [Concomitant]
     Dosage: UNK, UNKNOWN
     Route: 065
  10. IMITREX [Concomitant]
     Indication: MIGRAINE
     Dosage: 100 MG, AS NEEDED
     Route: 065
  11. DONNATAL [Concomitant]
     Indication: NAUSEA
     Dosage: UNK, AS NEEDED
     Route: 065
  12. MIACALCIN [Concomitant]
     Dosage: UNK, UNKNOWN
     Route: 065
  13. CITRICAL [Concomitant]
     Dosage: UNK, UNKNOWN
     Route: 065
  14. VITAMIN D [Concomitant]
     Dosage: UNK, UNKNOWN
     Route: 065
  15. CENTRUM SILVER [Concomitant]
     Dosage: UNK, UNKNOWN
     Route: 065
  16. CELEBREX [Concomitant]
     Dosage: 200 MG, DAILY (1/D)
  17. MS CONTIN [Concomitant]
     Dosage: 15 MG, EACH EVENING
  18. TYLENOL W/ CODEINE NO. 3 [Concomitant]
     Dosage: UNK, AS NEEDED
  19. ZOFRAN [Concomitant]
     Dosage: UNK, AS NEEDED
     Route: 065
  20. CALCIUM [Concomitant]
     Dosage: UNK, DAILY (1/D)

REACTIONS (5)
  - DRY THROAT [None]
  - FALL [None]
  - LUNG NEOPLASM [None]
  - PAIN [None]
  - WRIST FRACTURE [None]
